FAERS Safety Report 7631470-3 (Version None)
Quarter: 2011Q3

REPORT INFORMATION
  Report Type: 
  Country: None (occurrence: None)
  Receive Date: 20110725
  Receipt Date: 20110718
  Transmission Date: 20111222
  Serious: Yes (Other)
  Sender: FDA-Public Use
  Company Number: PHHY2011GB64107

PATIENT
  Age: 34 Year
  Sex: Male

DRUGS (4)
  1. ARCOXIA [Concomitant]
  2. HUMIRA [Suspect]
     Indication: PSORIATIC ARTHROPATHY
     Dosage: 40 MG, UNK
     Route: 058
     Dates: start: 20081201, end: 20110712
  3. FOLIC ACID [Concomitant]
  4. METHOTREXATE [Suspect]
     Indication: PSORIATIC ARTHROPATHY
     Dosage: 25 MG, QW
     Route: 048

REACTIONS (1)
  - MALIGNANT MELANOMA [None]
